FAERS Safety Report 6295374-3 (Version None)
Quarter: 2009Q3

REPORT INFORMATION
  Report Type: 
  Country: None (occurrence: None)
  Receive Date: 20090730
  Receipt Date: 20090722
  Transmission Date: 20100115
  Serious: Yes (Life-Threatening)
  Sender: FDA-Public Use
  Company Number: B0583564A

PATIENT
  Sex: Female
  Weight: 64.8644 kg

DRUGS (5)
  1. WELLBUTRIN XL [Suspect]
     Indication: MAJOR DEPRESSION
     Dates: start: 20090429
  2. VENLAFAXINE HYDROCHLORIDE [Concomitant]
  3. ALPRAZOLAM [Concomitant]
  4. ZOLPIDEM [Concomitant]
  5. OLANZAPINE [Concomitant]

REACTIONS (3)
  - BLISTER [None]
  - PRURITUS [None]
  - SKIN LESION [None]
